FAERS Safety Report 25151393 (Version 2)
Quarter: 2025Q2

REPORT INFORMATION
  Report Type: Spontaneous
  Country: NL (occurrence: NL)
  Receive Date: 20250402
  Receipt Date: 20250423
  Transmission Date: 20250716
  Serious: Yes (Hospitalization, Other)
  Sender: RECORDATI
  Company Number: NL-ORPHANEU-2025002175

PATIENT
  Age: 72 Year
  Sex: Male
  Weight: 64 kg

DRUGS (1)
  1. SYLVANT [Suspect]
     Active Substance: SILTUXIMAB
     Indication: Castleman^s disease
     Dosage: 700 MILLIGRAM, Q3W (EVERY 3 WEEKS), INFUSION
     Dates: start: 20250226

REACTIONS (2)
  - Streptococcal bacteraemia [Recovering/Resolving]
  - Hepatic failure [Unknown]

NARRATIVE: CASE EVENT DATE: 20250301
